FAERS Safety Report 5036807-X (Version None)
Quarter: 2006Q2

REPORT INFORMATION
  Report Type: 
  Country: None (occurrence: None)
  Receive Date: 20060626
  Receipt Date: 20060616
  Transmission Date: 20061013
  Serious: Yes (Other)
  Sender: FDA-Public Use
  Company Number: GXKR2006DE03402

PATIENT
  Sex: Male

DRUGS (1)
  1. DOXYCYCLINE [Suspect]
     Indication: ARTHROPOD BITE
     Dosage: ORAL
     Route: 048

REACTIONS (3)
  - BLOOD URINE PRESENT [None]
  - DYSURIA [None]
  - MICTURITION URGENCY [None]
